FAERS Safety Report 5737696-8 (Version None)
Quarter: 2008Q2

REPORT INFORMATION
  Report Type: 
  Country: None (occurrence: None)
  Receive Date: 20080513
  Receipt Date: 20080513
  Transmission Date: 20081010
  Serious: Yes (Life-Threatening, Other)
  Sender: FDA-Public Use
  Company Number: None

PATIENT
  Age: 85 Year
  Sex: Male
  Weight: 81.6475 kg

DRUGS (2)
  1. DIGITEK TABS 0.125MGB145 AMIDE -BERTEK- [Suspect]
     Indication: ATRIAL FIBRILLATION
     Dosage: 1 TAB EVERY 48 HOURS PO
     Route: 048
     Dates: start: 20080201, end: 20080512
  2. DIGITEK TABS 0.125MGB145 AMIDE -BERTEK- [Suspect]
     Indication: CARDIAC VALVE DISEASE
     Dosage: 1 TAB EVERY 48 HOURS PO
     Route: 048
     Dates: start: 20080201, end: 20080512

REACTIONS (14)
  - AMNESIA [None]
  - ANOREXIA [None]
  - ASTHENIA [None]
  - CONFUSIONAL STATE [None]
  - DEPRESSION [None]
  - DIZZINESS [None]
  - DYSPNOEA [None]
  - FATIGUE [None]
  - GAIT DISTURBANCE [None]
  - HEADACHE [None]
  - HEART RATE INCREASED [None]
  - LISTLESS [None]
  - SOMNOLENCE [None]
  - WEIGHT DECREASED [None]
